FAERS Safety Report 6970598-8 (Version None)
Quarter: 2010Q3

REPORT INFORMATION
  Report Type: 
  Country: None (occurrence: None)
  Receive Date: 20100908
  Receipt Date: 20100826
  Transmission Date: 20110219
  Serious: Yes (Other)
  Sender: FDA-Public Use
  Company Number: PHHY2010NO56374

PATIENT
  Sex: Female

DRUGS (2)
  1. ZOMETA [Suspect]
     Indication: MULTIPLE MYELOMA
     Dosage: UNK
     Route: 042
     Dates: start: 20050101, end: 20070101
  2. ZOMETA [Suspect]
     Dosage: UNK
     Dates: end: 20090101

REACTIONS (1)
  - OSTEONECROSIS OF JAW [None]
